FAERS Safety Report 9322802 (Version 2)
Quarter: 2013Q3

REPORT INFORMATION
  Report Type: Spontaneous
  Country: US (occurrence: US)
  Receive Date: 20130601
  Receipt Date: 20130703
  Transmission Date: 20140515
  Serious: No
  Sender: FDA-Public Use
  Company Number: US-B.I. PHARMACEUTICALS,INC./RIDGEFIELD-2013-BI-10584BP

PATIENT
  Age: 57 Year
  Sex: Male
  Weight: 54.43 kg

DRUGS (1)
  1. COMBIVENT [Suspect]
     Indication: ASTHMA
     Dosage: 1 PUF EVERY 6 HOURS
     Route: 055
     Dates: start: 201303

REACTIONS (6)
  - Incorrect route of drug administration [Unknown]
  - Lacrimation increased [Unknown]
  - Eye pruritus [Unknown]
  - Product quality issue [Unknown]
  - Product quality issue [Unknown]
  - Product quality issue [Unknown]
